FAERS Safety Report 9822757 (Version 2)
Quarter: 2014Q1

REPORT INFORMATION
  Report Type: Spontaneous
  Country: US (occurrence: US)
  Receive Date: 20140116
  Receipt Date: 20140116
  Transmission Date: 20141002
  Serious: Yes (Hospitalization)
  Sender: FDA-Public Use
  Company Number: US-B.I. PHARMACEUTICALS,INC./RIDGEFIELD-2013-BI-22896BP

PATIENT
  Sex: Male
  Weight: 81.65 kg

DRUGS (11)
  1. PRADAXA [Suspect]
     Indication: ATRIAL FIBRILLATION
     Dates: start: 20120118, end: 20120911
  2. FUROSEMIDE [Concomitant]
     Dates: start: 2008
  3. SIMVASTATIN [Concomitant]
     Dates: start: 2008
  4. AMIODARONE [Concomitant]
     Dates: start: 2008
  5. GUAIFENESIN [Concomitant]
     Dates: start: 2008
  6. OMEPRAZOLE [Concomitant]
     Dates: start: 2008
  7. VESICARE [Concomitant]
     Dates: start: 2011
  8. LISINOPRIL [Concomitant]
     Dates: start: 2008
  9. CALCITRIOL [Concomitant]
     Dates: start: 2011
  10. CARVEDILOL [Concomitant]
     Dates: start: 2008
  11. KLOR-CON [Concomitant]
     Dates: start: 2008

REACTIONS (1)
  - Gastrointestinal haemorrhage [Unknown]
